FAERS Safety Report 6885250-7 (Version None)
Quarter: 2010Q3

REPORT INFORMATION
  Report Type: 
  Country: None (occurrence: None)
  Receive Date: 20100729
  Receipt Date: 20100729
  Transmission Date: 20110219
  Serious: No
  Sender: FDA-Public Use
  Company Number: None

PATIENT
  Sex: Female
  Weight: 128.8216 kg

DRUGS (1)
  1. DILAUDID [Suspect]
     Route: 042
     Dates: start: 20100427, end: 20100427

REACTIONS (2)
  - DIZZINESS POSTURAL [None]
  - ERYTHEMA [None]
